FAERS Safety Report 6618699-8 (Version None)
Quarter: 2010Q1

REPORT INFORMATION
  Report Type: 
  Country: None (occurrence: None)
  Receive Date: 20100308
  Receipt Date: 20100225
  Transmission Date: 20100710
  Serious: Yes (Hospitalization)
  Sender: FDA-Public Use
  Company Number: KR-GILEAD-E2B_00000566

PATIENT
  Sex: Male
  Weight: 74 kg

DRUGS (4)
  1. HEPSERA [Suspect]
     Indication: HEPATITIS B
     Dosage: 10MG PER DAY
     Route: 048
     Dates: start: 20050923
  2. ADELAVIN [Concomitant]
     Dates: start: 20051020, end: 20051026
  3. MUCOSTA [Concomitant]
     Dates: start: 20051021, end: 20051129
  4. URSODEOXYCHOLIC ACID [Concomitant]
     Dates: start: 20051028, end: 20051129

REACTIONS (1)
  - HEPATIC ENZYME INCREASED [None]
